FAERS Safety Report 4893352-X (Version None)
Quarter: 2006Q1

REPORT INFORMATION
  Report Type: 
  Country: None (occurrence: None)
  Receive Date: 20060127
  Receipt Date: 20060119
  Transmission Date: 20060701
  Serious: Yes (Other)
  Sender: FDA-Public Use
  Company Number: GB-ABBOTT-06P-167-0322943-00

PATIENT
  Age: 30 Year
  Sex: Female

DRUGS (3)
  1. EPILIM TABLETS [Suspect]
     Indication: DRUG USE FOR UNKNOWN INDICATION
     Route: 048
  2. ZAPONEX [Suspect]
     Indication: DRUG USE FOR UNKNOWN INDICATION
     Route: 048
     Dates: start: 20051021
  3. SALBUTAMOL [Concomitant]
     Indication: ASTHMA
     Route: 065

REACTIONS (3)
  - INFLUENZA [None]
  - NASOPHARYNGITIS [None]
  - NEUTROPENIA [None]
